FAERS Safety Report 14323338 (Version 1)
Quarter: 2017Q4

REPORT INFORMATION
  Report Type: Report from Study
  Country: US (occurrence: US)
  Receive Date: 20171226
  Receipt Date: 20171226
  Transmission Date: 20180321
  Serious: Yes (Hospitalization, Other)
  Sender: FDA-Public Use
  Company Number: US-AMGEN-USASL2017188243

PATIENT
  Age: 82 Year
  Sex: Female
  Weight: 77.98 kg

DRUGS (30)
  1. METHOTREXATE. [Concomitant]
     Active Substance: METHOTREXATE
     Dosage: 2.5 MG, UNK
  2. PREDNISONE. [Concomitant]
     Active Substance: PREDNISONE
     Dosage: UNK
  3. DULCOLAX NOS [Concomitant]
     Active Substance: BISACODYL OR DOCUSATE SODIUM
     Dosage: 10 MG, AS NECESSARY, QD
     Route: 054
  4. DILAUDID [Concomitant]
     Active Substance: HYDROMORPHONE HYDROCHLORIDE
     Dosage: 1 MG, AS NECESSARY Q3H
     Route: 042
     Dates: start: 20161104
  5. ENBREL [Suspect]
     Active Substance: ETANERCEPT
     Indication: RHEUMATOID ARTHRITIS
     Dosage: 50 MG, QWK
     Route: 065
  6. VITAMIN C [Concomitant]
     Active Substance: ASCORBIC ACID
     Dosage: 500 MG, BID
     Route: 048
     Dates: start: 20161106
  7. FLUNASE [Concomitant]
     Active Substance: FLUTICASONE PROPIONATE
     Dosage: (ONE SPRAY), QD
     Route: 045
     Dates: start: 20161106
  8. ZOLOFT [Concomitant]
     Active Substance: SERTRALINE HYDROCHLORIDE
     Dosage: 50 MG, QD
     Route: 048
     Dates: start: 20161106
  9. LIPITOR [Concomitant]
     Active Substance: ATORVASTATIN CALCIUM
     Dosage: 10 MG, UNK (NIGHTLY)
     Route: 048
     Dates: start: 20161105
  10. NORCO [Concomitant]
     Active Substance: ACETAMINOPHEN\HYDROCODONE BITARTRATE
     Dosage: 7.5-325 MG AS NECESSARY Q4H ONE TO TWO TABLETS
     Route: 048
     Dates: start: 20161106
  11. MILK OF MAGNESIA [Concomitant]
     Active Substance: MAGNESIUM HYDROXIDE
     Dosage: 30 ML, AS NECESSARY QD
     Route: 048
  12. FLUARIX 2011/2012 [Concomitant]
     Active Substance: INFLUENZA A VIRUS A/CALIFORNIA/7/2009 X-181 (H1N1) ANTIGEN (FORMALDEHYDE INACTIVATED)\INFLUENZA A VIRUS A/VICTORIA/210/2009 X-187 (H3N2) ANTIGEN (FORMALDEHYDE INACTIVATED)\INFLUENZA B VIRUS B/BRISBANE/60/2008 ANTIGEN (FORMALDEHYDE INACTIVATED)\INFLUENZA VIRUS VACCINE
     Dosage: 0.5 ML, UNK
     Route: 030
     Dates: start: 2016
  13. ALDACTONE [Concomitant]
     Active Substance: SPIRONOLACTONE
     Dosage: 25 MG, QD
     Route: 048
     Dates: start: 20161106
  14. LEUCOVORIN. [Concomitant]
     Active Substance: LEUCOVORIN
  15. TYLENOL [Concomitant]
     Active Substance: ACETAMINOPHEN
     Dosage: 1000 MG, UNK
     Dates: start: 20161104
  16. DILAUDID [Concomitant]
     Active Substance: HYDROMORPHONE HYDROCHLORIDE
     Dosage: 0.2 MG, AS NECESSARY Q3H
     Route: 042
  17. ZOFRAN [Concomitant]
     Active Substance: ONDANSETRON HYDROCHLORIDE
     Dosage: 4 MG, AS NECESSARY Q6H
     Route: 042
  18. FOLVITE [Concomitant]
     Active Substance: FOLIC ACID
     Dosage: 1 MG, QD
     Route: 048
     Dates: start: 20161106
  19. PLAQUENIL [Concomitant]
     Active Substance: HYDROXYCHLOROQUINE SULFATE
     Dosage: 200 MG, BID
     Route: 048
     Dates: start: 20161106
  20. ASPIRIN. [Concomitant]
     Active Substance: ASPIRIN
     Dosage: 325 MG, BID
     Route: 048
     Dates: start: 20161106
  21. COREG [Concomitant]
     Active Substance: CARVEDILOL
     Dosage: 12.5 MG, BID (BKSU)
     Route: 048
     Dates: start: 20161106
  22. VITAMIN B12 [Concomitant]
     Active Substance: CYANOCOBALAMIN
     Dosage: 1000 MG, QD
     Route: 048
     Dates: start: 20161106
  23. ZOFRAN [Concomitant]
     Active Substance: ONDANSETRON HYDROCHLORIDE
     Dosage: 4 MG, AS NECESSARY Q8H
     Route: 048
  24. DELTASONE [Concomitant]
     Active Substance: PREDNISONE
     Dosage: 2 MG, QOD
     Route: 048
     Dates: start: 20161105
  25. FLEET ENEMA [Concomitant]
     Active Substance: SODIUM PHOSPHATE, DIBASIC\SODIUM PHOSPHATE, MONOBASIC
     Dosage: 133 ML, AS NECESSARY QD
     Route: 054
  26. NORCO [Concomitant]
     Active Substance: ACETAMINOPHEN\HYDROCODONE BITARTRATE
     Dosage: 5-325 MG, AS NECESSARY Q4H TWO TABLETS
     Route: 048
     Dates: start: 20161103, end: 201611
  27. DILAUDID [Concomitant]
     Active Substance: HYDROMORPHONE HYDROCHLORIDE
     Dosage: 0.5 MG, AS NECESSARY Q3H
     Route: 042
  28. PERCOCET [Concomitant]
     Active Substance: ACETAMINOPHEN\OXYCODONE HYDROCHLORIDE
     Dosage: 7.5-325 MG 1 TABLET AS NECESSARY Q6H
     Route: 048
     Dates: start: 20161104
  29. ACCUPRIL [Concomitant]
     Active Substance: QUINAPRIL HYDROCHLORIDE
     Dosage: 20 MG, QD
     Route: 048
     Dates: start: 20161106
  30. FOLIC ACID. [Concomitant]
     Active Substance: FOLIC ACID
     Dosage: 1 MG, QD
     Route: 048

REACTIONS (36)
  - Cystitis [Recovering/Resolving]
  - Sleep apnoea syndrome [Unknown]
  - Osteoarthritis [Unknown]
  - Fall [Unknown]
  - Stress cardiomyopathy [Unknown]
  - Osteopenia [Unknown]
  - Coronary artery disease [Unknown]
  - Vitamin D deficiency [Unknown]
  - Hypothyroidism [Unknown]
  - Hand deformity [Unknown]
  - Foot deformity [Unknown]
  - Computerised tomogram abnormal [Unknown]
  - Oedema peripheral [Unknown]
  - Obesity [Unknown]
  - Femoral neck fracture [Unknown]
  - Rheumatoid arthritis [Unknown]
  - Weight decreased [Unknown]
  - Nasal congestion [Unknown]
  - Iron deficiency anaemia [Unknown]
  - Essential hypertension [Unknown]
  - Gastrooesophageal reflux disease [Unknown]
  - Elbow deformity [Unknown]
  - Intestinal obstruction [Recovering/Resolving]
  - Depression [Unknown]
  - Sepsis [Recovering/Resolving]
  - Irritable bowel syndrome [Unknown]
  - Dry skin [Unknown]
  - Tangentiality [Unknown]
  - Hypoxia [Unknown]
  - Angina pectoris [Unknown]
  - Dry mouth [Unknown]
  - Dry eye [Unknown]
  - Insomnia [Unknown]
  - Anaemia macrocytic [Unknown]
  - Skin warm [Unknown]
  - Slow speech [Unknown]

NARRATIVE: CASE EVENT DATE: 2011
